FAERS Safety Report 16174279 (Version 1)
Quarter: 2019Q2

REPORT INFORMATION
  Report Type: Spontaneous
  Country: US (occurrence: US)
  Receive Date: 20190408
  Receipt Date: 20190408
  Transmission Date: 20190711
  Serious: Yes (Hospitalization, Disabling)
  Sender: FDA-Public Use
  Company Number: None

PATIENT
  Age: 39 Year
  Sex: Female
  Weight: 83.91 kg

DRUGS (5)
  1. INOSITOL(B-VITAMIN) [Concomitant]
  2. MULTI-VITAMIN [Concomitant]
     Active Substance: .ALPHA.-TOCOPHEROL ACETATE, DL-\ASCORBIC ACID\CYANOCOBALAMIN\FLUORIDE ION\FOLIC ACID\NIACIN\PYRIDOXINE\RIBOFLAVIN\THIAMINE\VITAMIN A\VITAMIN D
  3. ARMOR THYROID 65 MG DAILY [Concomitant]
  4. PARAGARD T 380A [Suspect]
     Active Substance: COPPER
     Dates: start: 20081021, end: 20170421
  5. ALLERGY PILL [Concomitant]
     Active Substance: UNSPECIFIED INGREDIENT

REACTIONS (9)
  - Dysmenorrhoea [None]
  - Menorrhagia [None]
  - Loss of libido [None]
  - Fluid retention [None]
  - Product complaint [None]
  - Depression [None]
  - Pain [None]
  - Anxiety [None]
  - Complication associated with device [None]

NARRATIVE: CASE EVENT DATE: 20151029
